FAERS Safety Report 12889091 (Version 1)
Quarter: 2016Q4

REPORT INFORMATION
  Report Type: Spontaneous
  Country: US (occurrence: US)
  Receive Date: 20161027
  Receipt Date: 20161027
  Transmission Date: 20170207
  Serious: Yes (Hospitalization)
  Sender: FDA-Public Use
  Company Number: US-PFIZER INC-2016487788

PATIENT
  Age: 66 Year
  Sex: Female

DRUGS (16)
  1. AROMASIN [Concomitant]
     Active Substance: EXEMESTANE
  2. LEVALBUTEROL HCL [Concomitant]
     Active Substance: LEVALBUTEROL HYDROCHLORIDE
  3. SIMVASTATIN. [Concomitant]
     Active Substance: SIMVASTATIN
  4. AMBIEN CR [Concomitant]
     Active Substance: ZOLPIDEM TARTRATE
     Dosage: UNK
  5. CALCIUM 500+D [Concomitant]
     Active Substance: CALCIUM\VITAMIN D
  6. LANTUS [Concomitant]
     Active Substance: INSULIN GLARGINE
  7. TYLENOL 8 HR [Concomitant]
     Active Substance: ACETAMINOPHEN
     Dosage: UNK
  8. VICODIN HP [Concomitant]
     Active Substance: ACETAMINOPHEN\HYDROCODONE BITARTRATE
  9. IBRANCE [Suspect]
     Active Substance: PALBOCICLIB
     Dosage: 100 MG, CYCLIC (DAILY FOR 21 DAYS, 7 DAYS OFF)
     Dates: start: 20160722
  10. FUROSEMIDE. [Concomitant]
     Active Substance: FUROSEMIDE
  11. EXEMESTANE. [Concomitant]
     Active Substance: EXEMESTANE
  12. PANTOPRAZOLE SODIUM. [Concomitant]
     Active Substance: PANTOPRAZOLE SODIUM
  13. MIRALAX [Concomitant]
     Active Substance: POLYETHYLENE GLYCOL 3350
  14. XANAX [Concomitant]
     Active Substance: ALPRAZOLAM
  15. COLACE CLEAR [Concomitant]
     Active Substance: DOCUSATE SODIUM
  16. VITAMIN D3 [Concomitant]
     Active Substance: CHOLECALCIFEROL

REACTIONS (2)
  - Fluid retention [Unknown]
  - Product use issue [Unknown]
